FAERS Safety Report 6429883-0 (Version None)
Quarter: 2009Q4

REPORT INFORMATION
  Report Type: 
  Country: None (occurrence: None)
  Receive Date: 20091106
  Receipt Date: 20091027
  Transmission Date: 20100525
  Serious: Yes (Hospitalization)
  Sender: FDA-Public Use
  Company Number: CA-CELGENEUS-028-C5013-09080473

PATIENT
  Sex: Female
  Weight: 57.5 kg

DRUGS (26)
  1. THALIDOMIDE [Suspect]
     Indication: MULTIPLE MYELOMA
     Route: 048
     Dates: start: 20090729
  2. MELPHALAN HYDROCHLORIDE [Suspect]
     Indication: MULTIPLE MYELOMA
     Route: 065
     Dates: start: 20090729, end: 20090801
  3. PREDNISONE [Suspect]
     Indication: MULTIPLE MYELOMA
     Dates: start: 20090729, end: 20090801
  4. MINERAL OIL ENEMA [Concomitant]
     Indication: CONSTIPATION
     Route: 054
     Dates: start: 20090806, end: 20090808
  5. METHYLNALTREXONE [Concomitant]
     Indication: CONSTIPATION
     Route: 058
     Dates: start: 20090807, end: 20090807
  6. DOCUSATE SODIUM [Concomitant]
     Indication: CONSTIPATION
     Route: 048
     Dates: start: 20090807, end: 20090812
  7. MAGNESIUM ROUGIER [Concomitant]
     Route: 048
     Dates: start: 20090809, end: 20090812
  8. FUROSEMIDE [Concomitant]
     Indication: PROPHYLAXIS
     Route: 051
     Dates: start: 20090811, end: 20090811
  9. FUROSEMIDE [Concomitant]
     Route: 051
     Dates: start: 20090809, end: 20090810
  10. POLYETHYLENE GLYCOL [Concomitant]
     Indication: CONSTIPATION
     Route: 048
     Dates: start: 20090808, end: 20090808
  11. HEPARIN [Concomitant]
     Indication: THROMBOSIS PROPHYLAXIS
     Dosage: 5000 UNITS
     Route: 058
     Dates: start: 20090809, end: 20090812
  12. MOS SULFATE [Concomitant]
     Indication: BACK PAIN
     Route: 048
     Dates: start: 20090721
  13. MOS SULFATE [Concomitant]
  14. MORPHINE SULFATE [Concomitant]
     Indication: BACK PAIN
     Route: 048
     Dates: start: 20090721
  15. MORPHINE SULFATE [Concomitant]
  16. METOCLOPRAMIDE [Concomitant]
     Indication: NAUSEA
     Route: 048
     Dates: start: 20090721
  17. LACTULOSE [Concomitant]
     Indication: CONSTIPATION
     Dosage: 15-30 ML
     Route: 048
     Dates: start: 20090721
  18. SENOKOT [Concomitant]
     Indication: CONSTIPATION
     Route: 048
     Dates: start: 20090721
  19. DOCUSATE CALCIUM [Concomitant]
     Indication: CONSTIPATION
     Dosage: 240 TO 720MG
     Route: 048
     Dates: start: 20090721
  20. MAGNESIUM [Concomitant]
     Route: 048
     Dates: start: 20090721
  21. PANTOPRAZOLE [Concomitant]
     Route: 048
     Dates: start: 20090721
  22. LEVAQUIN [Concomitant]
     Indication: PNEUMONIA
     Route: 048
     Dates: start: 20090721, end: 20090729
  23. FERROUS GLUCONATE [Concomitant]
     Route: 048
     Dates: start: 20090508
  24. ARTHROTEC [Concomitant]
     Indication: ARTHRITIS
     Dosage: 50/200MCG
     Route: 048
     Dates: start: 20090508
  25. SYNTHROID [Concomitant]
     Indication: HYPOTHYROIDISM
     Route: 048
     Dates: start: 20090501
  26. BLOOD TRANSFUSION [Concomitant]
     Indication: DRUG USE FOR UNKNOWN INDICATION
     Route: 065

REACTIONS (8)
  - COLLAPSE OF LUNG [None]
  - CONSTIPATION [None]
  - LUNG CONSOLIDATION [None]
  - MULTIPLE MYELOMA [None]
  - PLEURAL EFFUSION [None]
  - SOMNOLENCE [None]
  - SPINAL COMPRESSION FRACTURE [None]
  - TUMOUR FLARE [None]
